FAERS Safety Report 4929047-3 (Version None)
Quarter: 2006Q1

REPORT INFORMATION
  Report Type: 
  Country: None (occurrence: None)
  Receive Date: 20060301
  Receipt Date: 20060215
  Transmission Date: 20060701
  Serious: Yes (Hospitalization)
  Sender: FDA-Public Use
  Company Number: GB-MERCK-0602GBR00101

PATIENT
  Age: 81 Year

DRUGS (5)
  1. COZAAR [Suspect]
     Indication: BLOOD PRESSURE FLUCTUATION
     Route: 048
     Dates: end: 20060129
  2. BENDROFLUMETHIAZIDE [Suspect]
     Indication: BLOOD PRESSURE FLUCTUATION
     Route: 048
     Dates: end: 20060129
  3. RAMIPRIL [Concomitant]
     Indication: BLOOD PRESSURE INCREASED
     Route: 048
  4. ASPIRIN [Concomitant]
     Route: 048
  5. SIMVASTATIN [Concomitant]
     Indication: BLOOD CHOLESTEROL INCREASED
     Route: 048

REACTIONS (3)
  - LOSS OF CONSCIOUSNESS [None]
  - ORTHOSTATIC HYPOTENSION [None]
  - SYNCOPE [None]
